FAERS Safety Report 9830035 (Version 3)
Quarter: 2014Q1

REPORT INFORMATION
  Report Type: Report from Study
  Country: US (occurrence: US)
  Receive Date: 20140120
  Receipt Date: 20140319
  Transmission Date: 20141002
  Serious: Yes (Other)
  Sender: FDA-Public Use
  Company Number: US-ROCHE-1227290

PATIENT
  Age: 81 Year
  Sex: Female

DRUGS (7)
  1. TARCEVA [Suspect]
     Indication: LUNG NEOPLASM MALIGNANT
     Route: 065
  2. TARCEVA [Suspect]
     Indication: LUNG NEOPLASM MALIGNANT
     Route: 065
  3. DIAZEPAM [Suspect]
     Indication: SLEEP DISORDER
     Dosage: AT BEDTIME
     Route: 065
  4. CLONIDINE [Concomitant]
     Indication: HYPERTENSION
  5. ATENOLOL [Concomitant]
  6. SIMVASTATIN [Concomitant]
  7. BABY ASPIRIN [Concomitant]
     Route: 048

REACTIONS (15)
  - Skin cancer [Recovered/Resolved]
  - Ocular hyperaemia [Unknown]
  - Eye swelling [Unknown]
  - Rash [Unknown]
  - Diarrhoea [Unknown]
  - Dry skin [Unknown]
  - Skin exfoliation [Unknown]
  - Somnolence [Unknown]
  - Feeling cold [Unknown]
  - Genital herpes [Not Recovered/Not Resolved]
  - Dry skin [Unknown]
  - Precancerous skin lesion [Unknown]
  - Impaired healing [Unknown]
  - Dyspepsia [Unknown]
  - Disease progression [Unknown]
